FAERS Safety Report 8551013-X (Version None)
Quarter: 2012Q3

REPORT INFORMATION
  Report Type: 
  Country: None (occurrence: None)
  Receive Date: 20120730
  Receipt Date: 20120720
  Transmission Date: 20120928
  Serious: Yes (Death)
  Sender: FDA-Public Use
  Company Number: AU-BAXTER-2012BAX012005

PATIENT
  Sex: Male

DRUGS (11)
  1. DIANEAL LOW CALCIUM W/ DEXTROSE 2.5% [Suspect]
     Indication: PERITONEAL DIALYSIS
     Route: 033
     Dates: end: 20120703
  2. DIANEAL LOW CALCIUM W/ DEXTROSE 1.5% [Suspect]
     Indication: PERITONEAL DIALYSIS
     Route: 033
     Dates: end: 20120703
  3. EXTRANEAL [Suspect]
     Dates: end: 20120703
  4. EXTRANEAL [Suspect]
     Dates: end: 20120703
  5. EXTRANEAL [Suspect]
     Indication: PERITONEAL DIALYSIS
     Route: 033
     Dates: end: 20120703
  6. DIANEAL [Suspect]
     Indication: PERITONEAL DIALYSIS
     Route: 033
     Dates: end: 20120703
  7. EXTRANEAL [Suspect]
     Dates: end: 20120703
  8. EXTRANEAL [Suspect]
     Dates: end: 20120703
  9. EXTRANEAL [Suspect]
     Dates: end: 20120703
  10. DIANEAL [Suspect]
     Indication: PERITONEAL DIALYSIS
     Route: 033
     Dates: end: 20120703
  11. EXTRANEAL [Suspect]
     Indication: PERITONEAL DIALYSIS
     Route: 033
     Dates: end: 20120703

REACTIONS (1)
  - DEATH [None]
